FAERS Safety Report 23024128 (Version 1)
Quarter: 2023Q4

REPORT INFORMATION
  Report Type: Spontaneous
  Country: JP (occurrence: JP)
  Receive Date: 20231004
  Receipt Date: 20231004
  Transmission Date: 20240109
  Serious: Yes (Hospitalization, Other)
  Sender: FDA-Public Use
  Company Number: JP-STRIDES ARCOLAB LIMITED-2023SP014978

PATIENT
  Age: 38 Year
  Sex: Female

DRUGS (14)
  1. ETOPOSIDE [Suspect]
     Active Substance: ETOPOSIDE
     Indication: Choriocarcinoma
     Dosage: UNK (RECEIVED AS PART OF MEA, EMA/CO AND EP/EMA AND THEN RECEIVED ONE COURSE WITH DACTINOMYCIN, AFTE
     Route: 065
  2. ETOPOSIDE [Suspect]
     Active Substance: ETOPOSIDE
     Indication: Gestational trophoblastic tumour
  3. METHOTREXATE [Suspect]
     Active Substance: METHOTREXATE
     Indication: Choriocarcinoma
     Dosage: UNK
     Route: 065
  4. METHOTREXATE [Suspect]
     Active Substance: METHOTREXATE
     Indication: Gestational trophoblastic tumour
     Dosage: UNK (RECEIVED FOUR COURSES, THEN AS PART OF MEA, EMA/CO AND EP/EMA AND AGAIN RECEIVED FOUR COURSES)
     Route: 065
  5. CISPLATIN [Suspect]
     Active Substance: CISPLATIN
     Indication: Choriocarcinoma
     Dosage: UNK, RECEIVED AS PART OF EP/EMA AND TWO COURSES WITH PACLITAXEL
     Route: 065
  6. CISPLATIN [Suspect]
     Active Substance: CISPLATIN
     Indication: Gestational trophoblastic tumour
  7. ACTINOMYCIN D [Suspect]
     Active Substance: DACTINOMYCIN
     Indication: Choriocarcinoma
     Dosage: UNK (RECEIVED THREE COURSES)
     Route: 065
  8. ACTINOMYCIN D [Suspect]
     Active Substance: DACTINOMYCIN
     Indication: Gestational trophoblastic tumour
     Dosage: UNK (THEN RECEIVED AS PART OF MEA, EMA/CO AND EP/EMA AND THEN ONE COURSE)
     Route: 065
  9. VINCRISTINE [Suspect]
     Active Substance: VINCRISTINE
     Indication: Gestational trophoblastic tumour
     Dosage: UNK, RECEIVED AS PART OF EMA/CO
     Route: 065
  10. PACLITAXEL [Suspect]
     Active Substance: PACLITAXEL
     Indication: Choriocarcinoma
     Dosage: UNK, RECEIVED TWO COURSES OF PACLITAXEL WITH CISPLATIN ALTERNATING WITH PACLITAXEL AND ETOPOSIDE
     Route: 065
  11. PACLITAXEL [Suspect]
     Active Substance: PACLITAXEL
     Indication: Gestational trophoblastic tumour
  12. PEMBROLIZUMAB [Suspect]
     Active Substance: PEMBROLIZUMAB
     Indication: Choriocarcinoma
     Dosage: 15 MILLIGRAM, EVERY 3 WEEKS, RECEIVED TEN COURSES
     Route: 065
  13. PEMBROLIZUMAB [Suspect]
     Active Substance: PEMBROLIZUMAB
     Indication: Gestational trophoblastic tumour
  14. CYCLOPHOSPHAMIDE [Suspect]
     Active Substance: CYCLOPHOSPHAMIDE
     Indication: Gestational trophoblastic tumour
     Dosage: UNK, RECEIVED AS PART OF EMA/CO
     Route: 065

REACTIONS (3)
  - Renal failure [Unknown]
  - Myelosuppression [Recovered/Resolved]
  - Drug ineffective for unapproved indication [Unknown]
